FAERS Safety Report 6307847-5 (Version None)
Quarter: 2009Q3

REPORT INFORMATION
  Report Type: 
  Country: None (occurrence: None)
  Receive Date: 20090811
  Receipt Date: 20090811
  Transmission Date: 20100115
  Serious: No
  Sender: FDA-Public Use
  Company Number: None

PATIENT
  Age: 42 Year
  Sex: Female
  Weight: 89.8122 kg

DRUGS (2)
  1. LYRICA [Suspect]
     Indication: FIBROMYALGIA
     Dosage: 300MG PO
     Route: 048
     Dates: start: 20070101, end: 20081201
  2. LAMICTAL [Suspect]
     Indication: BIPOLAR DISORDER
     Dosage: 200MG 2 PO
     Route: 048
     Dates: start: 20080101, end: 20090301

REACTIONS (3)
  - HEPATOMEGALY [None]
  - LIVER FUNCTION TEST NORMAL [None]
  - SUICIDAL IDEATION [None]
